FAERS Safety Report 13390890 (Version 2)
Quarter: 2017Q2

REPORT INFORMATION
  Report Type: Spontaneous
  Country: US (occurrence: US)
  Receive Date: 20170331
  Receipt Date: 20170406
  Transmission Date: 20170830
  Serious: Yes (Other)
  Sender: FDA-Public Use
  Company Number: US-AUROBINDO-AUR-APL-2017-31641

PATIENT
  Age: 35 Year
  Sex: Female

DRUGS (1)
  1. AMOXICILLIN. [Suspect]
     Active Substance: AMOXICILLIN
     Indication: TOOTH INFECTION
     Route: 065

REACTIONS (5)
  - Rash maculo-papular [Unknown]
  - Maternal exposure during pregnancy [Unknown]
  - Epstein-Barr virus infection [Unknown]
  - Lymphadenopathy [Unknown]
  - Rash generalised [Recovered/Resolved]
